FAERS Safety Report 21902336 (Version 1)
Quarter: 2023Q1

REPORT INFORMATION
  Report Type: Spontaneous
  Country: PT (occurrence: PT)
  Receive Date: 20230124
  Receipt Date: 20230124
  Transmission Date: 20230418
  Serious: Yes (Life-Threatening, Hospitalization, Other)
  Sender: FDA-Public Use
  Company Number: PT-SUN PHARMACEUTICAL INDUSTRIES LTD-2023R1-374307

PATIENT
  Age: 75 Year
  Sex: Female

DRUGS (2)
  1. HYDROCORTISONE [Suspect]
     Active Substance: HYDROCORTISONE
     Indication: Cyanosis central
     Dosage: UNK
     Route: 065
  2. CLEMASTINE [Suspect]
     Active Substance: CLEMASTINE
     Indication: Cyanosis central
     Dosage: UNK
     Route: 065

REACTIONS (3)
  - Cardiac arrest [Unknown]
  - Angioedema [Unknown]
  - Urticaria [Unknown]
